FAERS Safety Report 5581048-0 (Version None)
Quarter: 2008Q1

REPORT INFORMATION
  Report Type: 
  Country: None (occurrence: None)
  Receive Date: 20080103
  Receipt Date: 20071224
  Transmission Date: 20080703
  Serious: Yes (Other)
  Sender: FDA-Public Use
  Company Number: US-ALLERGAN-0714338US

PATIENT
  Sex: Male

DRUGS (2)
  1. GATIFLOXACIN SESQUIHYDRATE UNK [Suspect]
     Indication: CORNEAL DEFECT
     Dosage: UNK, QID
     Route: 047
  2. SILICONE OIL [Suspect]
     Indication: DRUG USE FOR UNKNOWN INDICATION
     Dosage: UNK, SINGLE
     Route: 031

REACTIONS (2)
  - CORNEAL PERFORATION [None]
  - CORNEAL THINNING [None]
